FAERS Safety Report 23528075 (Version 1)
Quarter: 2024Q1

REPORT INFORMATION
  Report Type: Report from Study
  Country: US (occurrence: US)
  Receive Date: 20240215
  Receipt Date: 20240215
  Transmission Date: 20240410
  Serious: Yes (Hospitalization)
  Sender: FDA-Public Use
  Company Number: US-Eisai-EC-2024-159612

PATIENT
  Age: 75 Year
  Sex: Male
  Weight: 111 kg

DRUGS (10)
  1. LENVIMA [Suspect]
     Active Substance: LENVATINIB
     Indication: Renal cancer
     Route: 048
     Dates: start: 20230410
  2. LENVIMA [Suspect]
     Active Substance: LENVATINIB
     Route: 048
     Dates: end: 202401
  3. KEYTRUDA [Concomitant]
     Active Substance: PEMBROLIZUMAB
     Indication: Product used for unknown indication
     Dosage: DOSE AND FREQUENCY NOT PROVIDED
     Route: 065
  4. CARVEDILOL [Concomitant]
     Active Substance: CARVEDILOL
  5. DILANTIN [Concomitant]
     Active Substance: PHENYTOIN
  6. DOCUSATE [Concomitant]
     Active Substance: DOCUSATE
  7. LEVETIRACETAM [Concomitant]
     Active Substance: LEVETIRACETAM
  8. NIFEDIPINE [Concomitant]
     Active Substance: NIFEDIPINE
  9. OMEPRAZOLE [Concomitant]
     Active Substance: OMEPRAZOLE
  10. POLYETHYLENE GLYCOL [Concomitant]
     Active Substance: POLYETHYLENE GLYCOL

REACTIONS (2)
  - Full blood count decreased [Recovering/Resolving]
  - Hypotension [Recovering/Resolving]

NARRATIVE: CASE EVENT DATE: 20240101
